FAERS Safety Report 9104885 (Version 1)
Quarter: 2013Q1

REPORT INFORMATION
  Report Type: Spontaneous
  Country: SI (occurrence: SI)
  Receive Date: 20130219
  Receipt Date: 20130219
  Transmission Date: 20140127
  Serious: Yes (Hospitalization)
  Sender: FDA-Public Use
  Company Number: PHHY2013SI015186

PATIENT
  Age: 81 Year
  Sex: Female

DRUGS (7)
  1. TEGRETOL [Suspect]
     Indication: EPILEPSY
     Dosage: 1 DF, BID
     Route: 048
     Dates: start: 201211
  2. ASPIRIN PROTECT [Concomitant]
     Dosage: 1 DF, DAILY
     Route: 048
  3. NOLPAZA [Concomitant]
     Dosage: UNK UKN, UNK
     Route: 048
  4. SORVASTA [Concomitant]
     Dosage: 20 MG, DAILY
     Route: 048
  5. AMLESSA [Concomitant]
     Dosage: 1 DF, BID
     Route: 048
  6. CONCOR [Concomitant]
     Dosage: 5 MG, BID
     Route: 048
  7. PREDUCTAL MR [Concomitant]
     Dosage: 1 DF, BID
     Route: 048

REACTIONS (4)
  - Dysphagia [Recovered/Resolved]
  - Feeding disorder [Recovered/Resolved]
  - Hyponatraemia [Recovered/Resolved]
  - Altered state of consciousness [Recovered/Resolved]
